FAERS Safety Report 9110465 (Version 1)
Quarter: 2013Q1

REPORT INFORMATION
  Report Type: Spontaneous
  Country: US (occurrence: US)
  Receive Date: 20130219
  Receipt Date: 20130219
  Transmission Date: 20140127
  Serious: Yes (Hospitalization)
  Sender: FDA-Public Use
  Company Number: US-BRACCO-008720

PATIENT
  Age: 68 Year
  Sex: Male
  Weight: 75 kg

DRUGS (16)
  1. HYTRIN [Concomitant]
     Route: 048
  2. TRAZODONE [Concomitant]
     Route: 048
  3. PREDNISONE [Concomitant]
     Route: 048
  4. REQUIP [Concomitant]
     Route: 048
  5. PRILOSEC [Concomitant]
  6. PREDNISONE [Concomitant]
     Dosage: 50 MG ORALLY TAKEN 13 HOURS, SEVEN HOURS, THEN ONE HOUR PRIOR TO SCAN
     Route: 048
     Dates: start: 20121010, end: 20121011
  7. SPIRIVA [Concomitant]
     Dosage: 1 PUFF DAILY
     Route: 055
  8. ISOVUE 300 [Suspect]
     Indication: ANGIOGRAM
     Route: 042
     Dates: start: 20121011, end: 20121011
  9. ISOVUE 300 [Suspect]
     Indication: ANEURYSM REPAIR
     Route: 042
     Dates: start: 20121011, end: 20121011
  10. BENADRYL [Concomitant]
     Dosage: 50 MG TAKEN ORALLY ONE HOUR PRIOR TO SCAN
     Route: 048
     Dates: start: 20121011, end: 20121011
  11. ZANTAC [Concomitant]
     Dosage: 300 MG TAKEN ORALLY ONE HOUR PRIOR TO THE SCAN
     Route: 048
     Dates: start: 20121011, end: 20121011
  12. VENTOLIN [Concomitant]
  13. BENAZEPRIL [Concomitant]
     Dosage: 10 MG IN THE MORNING AND 20 MG IN THE EVENING
  14. CILOSTAZOL [Concomitant]
     Route: 048
  15. FORADIL [Concomitant]
     Route: 055
  16. MOTRIN [Concomitant]
     Dosage: GIVEN AS NEEDED (PRN)

REACTIONS (1)
  - Hypersensitivity [Recovered/Resolved]
